FAERS Safety Report 6222901-4 (Version None)
Quarter: 2009Q2

REPORT INFORMATION
  Report Type: 
  Country: None (occurrence: None)
  Receive Date: 20090611
  Receipt Date: 20090601
  Transmission Date: 20091009
  Serious: Yes (Other)
  Sender: FDA-Public Use
  Company Number: FR-BRISTOL-MYERS SQUIBB COMPANY-14655971

PATIENT
  Age: 43 Year
  Sex: Male

DRUGS (5)
  1. DIDANOSINE [Suspect]
     Indication: HIV INFECTION
  2. STAVUDINE [Suspect]
     Indication: HIV INFECTION
  3. LAMIVUDINE [Suspect]
     Indication: HIV INFECTION
     Dates: start: 19980101
  4. NELFINAVIR [Suspect]
     Indication: HIV INFECTION
     Dates: start: 19980101
  5. ZIDOVUDINE [Suspect]
     Indication: HIV INFECTION
     Dates: start: 19980101

REACTIONS (2)
  - LIVER TRANSPLANT [None]
  - NODULAR REGENERATIVE HYPERPLASIA [None]
